FAERS Safety Report 11881112 (Version 2)
Quarter: 2016Q1

REPORT INFORMATION
  Report Type: Spontaneous
  Country: FR (occurrence: FR)
  Receive Date: 20151230
  Receipt Date: 20160101
  Transmission Date: 20160526
  Serious: Yes (Hospitalization)
  Sender: FDA-Public Use
  Company Number: FR-ASTRAZENECA-2015SF30663

PATIENT
  Age: 63 Year
  Sex: Male

DRUGS (27)
  1. HUMALOG [Concomitant]
     Active Substance: INSULIN LISPRO
     Dates: start: 20151121
  2. TIMOFEROL [Concomitant]
     Active Substance: ASCORBIC ACID\FERROUS SULFATE
  3. GEMCITABINE [Concomitant]
     Active Substance: GEMCITABINE\GEMCITABINE HYDROCHLORIDE
     Dates: start: 20151119, end: 20151120
  4. EUPRESSYL [Concomitant]
     Active Substance: URAPIDIL
  5. MOPRAL [Concomitant]
     Active Substance: OMEPRAZOLE SODIUM
  6. TAZOCILLINE [Concomitant]
     Active Substance: PIPERACILLIN SODIUM\TAZOBACTAM SODIUM
     Dates: start: 20151119, end: 20151123
  7. TARGOCID [Concomitant]
     Active Substance: TEICOPLANIN
     Dates: start: 20151130, end: 20151207
  8. HEPARIN [Concomitant]
     Active Substance: HEPARIN SODIUM
     Dates: start: 20151122
  9. TRAMADOL HYDROCHLORIDE. [Concomitant]
     Active Substance: TRAMADOL HYDROCHLORIDE
     Dates: start: 20151117, end: 20151130
  10. BISOPROLOL [Concomitant]
     Active Substance: BISOPROLOL
  11. CUBICIN [Suspect]
     Active Substance: DAPTOMYCIN
     Indication: INFECTION
     Route: 042
     Dates: start: 20151119, end: 20151130
  12. LASILIX [Suspect]
     Active Substance: FUROSEMIDE
     Indication: PRODUCT USED FOR UNKNOWN INDICATION
     Route: 065
     Dates: start: 20151117, end: 20151202
  13. FUNGIZONE [Concomitant]
     Active Substance: AMPHOTERICIN B
     Dates: start: 20151123
  14. PHYTONADIONE. [Concomitant]
     Active Substance: PHYTONADIONE
     Dates: start: 20151119, end: 20151119
  15. MAGNESIUM CHLORIDE. [Concomitant]
     Active Substance: MAGNESIUM CHLORIDE
     Dates: start: 20151117, end: 20151202
  16. PREVISCAN [Concomitant]
     Active Substance: FLUINDIONE
  17. COLCHIMAX [Concomitant]
     Active Substance: COLCHICINE\DICYCLOMINE HYDROCHLORIDE
  18. AUGMENTIN [Concomitant]
     Active Substance: AMOXICILLIN\CLAVULANATE POTASSIUM
     Dates: start: 20151117, end: 20151119
  19. MERONEM [Suspect]
     Active Substance: MEROPENEM
     Indication: INFECTION
     Route: 042
     Dates: start: 20151123, end: 20151127
  20. TAHOR [Concomitant]
     Active Substance: ATORVASTATIN CALCIUM
  21. DIFFU-K [Concomitant]
     Active Substance: POTASSIUM CHLORIDE
     Dates: end: 20151201
  22. CEFTRIAXONE. [Concomitant]
     Active Substance: CEFTRIAXONE
     Dates: start: 20151130, end: 20151130
  23. ZOLPIDEM TARTRATE. [Concomitant]
     Active Substance: ZOLPIDEM TARTRATE
     Dates: start: 20151120, end: 20151122
  24. ADENURIC [Concomitant]
     Active Substance: FEBUXOSTAT
  25. DUOTRAV [Concomitant]
     Active Substance: TIMOLOL MALEATE\TRAVOPROST
  26. LEVEMIR [Concomitant]
     Active Substance: INSULIN DETEMIR
  27. IRBESARTAN. [Concomitant]
     Active Substance: IRBESARTAN

REACTIONS (2)
  - Henoch-Schonlein purpura [Unknown]
  - Purpura [Recovered/Resolved]

NARRATIVE: CASE EVENT DATE: 20151130
